FAERS Safety Report 22203254 (Version 1)
Quarter: 2023Q2

REPORT INFORMATION
  Report Type: Spontaneous
  Country: CN (occurrence: CN)
  Receive Date: 20230412
  Receipt Date: 20230412
  Transmission Date: 20230721
  Serious: Yes (Other)
  Sender: FDA-Public Use
  Company Number: CN-BAYER-2022A047737

PATIENT

DRUGS (1)
  1. XARELTO [Suspect]
     Active Substance: RIVAROXABAN
     Indication: Product used for unknown indication
     Dosage: UNK
     Route: 048
     Dates: start: 202202

REACTIONS (5)
  - Intestinal fistula [Unknown]
  - Road traffic accident [Unknown]
  - Liver operation [Unknown]
  - Gallbladder operation [Unknown]
  - Pancreatic operation [Unknown]

NARRATIVE: CASE EVENT DATE: 20220101
